FAERS Safety Report 4502347-7 (Version None)
Quarter: 2004Q4

REPORT INFORMATION
  Report Type: 
  Country: None (occurrence: None)
  Receive Date: 20041110
  Receipt Date: 20041101
  Transmission Date: 20050328
  Serious: Yes (Other)
  Sender: FDA-Public Use
  Company Number: STA-AE-04-MTX-528

PATIENT
  Sex: Male

DRUGS (3)
  1. METHOTREXATE [Suspect]
     Indication: PSORIASIS
     Dosage: 2.5 MG 1X PER 1 DAY ORAL
     Route: 048
  2. METHOTREXATE [Suspect]
     Indication: RHEUMATOID ARTHRITIS
     Dosage: 2.5 MG 1X PER 1 DAY ORAL
     Route: 048
  3. VIOXX [Concomitant]

REACTIONS (6)
  - COLD SWEAT [None]
  - DIZZINESS [None]
  - LOSS OF CONSCIOUSNESS [None]
  - MUSCLE TIGHTNESS [None]
  - PYREXIA [None]
  - SYNCOPE [None]
